FAERS Safety Report 23906160 (Version 1)
Quarter: 2024Q2

REPORT INFORMATION
  Report Type: Spontaneous
  Country: US (occurrence: US)
  Receive Date: 20240528
  Receipt Date: 20240528
  Transmission Date: 20240716
  Serious: No
  Sender: FDA-Public Use
  Company Number: US-ABBVIE-5769578

PATIENT
  Age: 71 Year
  Sex: Female
  Weight: 90.718 kg

DRUGS (2)
  1. HUMIRA [Suspect]
     Active Substance: ADALIMUMAB
     Indication: Scleritis
     Dosage: FREQUENCY TEXT: 1ST DOSE, FORM STRENGTH: 40 MILLIGRAM
     Route: 058
     Dates: start: 20240520
  2. HUMIRA [Suspect]
     Active Substance: ADALIMUMAB
     Indication: Nodule

REACTIONS (2)
  - Injection site indentation [Recovered/Resolved]
  - Off label use [Not Recovered/Not Resolved]

NARRATIVE: CASE EVENT DATE: 20240520
